FAERS Safety Report 25402529 (Version 2)
Quarter: 2025Q2

REPORT INFORMATION
  Report Type: Report from Study
  Country: CA (occurrence: CA)
  Receive Date: 20250605
  Receipt Date: 20250626
  Transmission Date: 20250716
  Serious: Yes (Other)
  Sender: DR REDDYS
  Company Number: CA-DRL-USA-CAN/2025/04/005240

PATIENT
  Age: 76 Year
  Sex: Female

DRUGS (2)
  1. ZOLEDRONIC [Suspect]
     Active Substance: ZOLEDRONIC ACID
     Indication: Osteoporosis
     Route: 065
     Dates: start: 20240517
  2. ZOLEDRONIC [Suspect]
     Active Substance: ZOLEDRONIC ACID
     Route: 065
     Dates: start: 20170328

REACTIONS (2)
  - Hip arthroplasty [Unknown]
  - Pain [Unknown]

NARRATIVE: CASE EVENT DATE: 20250501
